FAERS Safety Report 8506901-7 (Version None)
Quarter: 2012Q3

REPORT INFORMATION
  Report Type: 
  Country: None (occurrence: None)
  Receive Date: 20120703
  Receipt Date: 20120626
  Transmission Date: 20120928
  Serious: No
  Sender: FDA-Public Use
  Company Number: 2012SP036470

PATIENT
  Age: 82 Year
  Sex: Female

DRUGS (3)
  1. PRILOSEC [Concomitant]
  2. ATIVAN [Concomitant]
  3. SAPHRIS [Suspect]
     Indication: PRODUCT USED FOR UNKNOWN INDICATION
     Dosage: 5 MG;BID;SL
     Route: 060

REACTIONS (1)
  - SWOLLEN TONGUE [None]
